FAERS Safety Report 20682223 (Version 4)
Quarter: 2022Q3

REPORT INFORMATION
  Report Type: Spontaneous
  Country: US (occurrence: US)
  Receive Date: 20220407
  Receipt Date: 20220701
  Transmission Date: 20221027
  Serious: Yes (Hospitalization)
  Sender: FDA-Public Use
  Company Number: US-UNITED THERAPEUTICS-UNT-2022-006779

PATIENT
  Sex: Female

DRUGS (7)
  1. REMODULIN [Suspect]
     Active Substance: TREPROSTINIL
     Indication: Pulmonary arterial hypertension
     Dosage: UNK, CONTINUING
     Route: 058
     Dates: start: 20220224
  2. REMODULIN [Suspect]
     Active Substance: TREPROSTINIL
     Dosage: 0.0153 ?G/KG, CONTINUING
     Route: 058
     Dates: start: 202203, end: 202203
  3. REMODULIN [Suspect]
     Active Substance: TREPROSTINIL
     Dosage: 0.0164 ?G/KG, CONTINUING
     Route: 058
     Dates: start: 202203
  4. REMODULIN [Suspect]
     Active Substance: TREPROSTINIL
     Dosage: 0.022 ?G/KG, CONTINUING
     Route: 058
     Dates: start: 20220409
  5. REMODULIN [Suspect]
     Active Substance: TREPROSTINIL
     Dosage: 0.0187 ?G/KG, CONTINUING
     Route: 058
  6. REMODULIN [Suspect]
     Active Substance: TREPROSTINIL
     Dosage: 0.038 ?G/KG, CONTINUING
     Route: 058
     Dates: start: 2022
  7. REMODULIN [Suspect]
     Active Substance: TREPROSTINIL
     Dosage: 0.016 ?G/KG, CONTINUING
     Route: 058
     Dates: start: 2022

REACTIONS (5)
  - Device infusion issue [Recovered/Resolved]
  - Headache [Recovered/Resolved]
  - Chest pain [Unknown]
  - Dyspnoea [Unknown]
  - Infusion site discomfort [Not Recovered/Not Resolved]

NARRATIVE: CASE EVENT DATE: 20220101
